FAERS Safety Report 4672567-X (Version None)
Quarter: 2005Q2

REPORT INFORMATION
  Report Type: 
  Country: None (occurrence: None)
  Receive Date: 20050524
  Receipt Date: 20050519
  Transmission Date: 20051028
  Serious: Yes (Other)
  Sender: FDA-Public Use
  Company Number: US-GLAXOSMITHKLINE-A0559345A

PATIENT
  Age: 82 Year
  Sex: Male

DRUGS (4)
  1. LANOXIN [Suspect]
     Indication: CARDIAC FAILURE
     Dosage: .25MG PER DAY
     Route: 048
  2. IRON SUPPLEMENT [Suspect]
  3. WARFARIN SODIUM [Concomitant]
  4. EPOGEN [Concomitant]

REACTIONS (4)
  - ABDOMINAL PAIN UPPER [None]
  - COLON CANCER [None]
  - HAEMOGLOBIN DECREASED [None]
  - ORAL DISCOMFORT [None]
